FAERS Safety Report 13469546 (Version 2)
Quarter: 2017Q2

REPORT INFORMATION
  Report Type: Spontaneous
  Country: IT (occurrence: IT)
  Receive Date: 20170421
  Receipt Date: 20170524
  Transmission Date: 20170830
  Serious: Yes (Other)
  Sender: FDA-Public Use
  Company Number: PHHY2017IT056570

PATIENT
  Age: 91 Year
  Sex: Female
  Weight: 65 kg

DRUGS (1)
  1. QUETIAPINE SANDOZ [Suspect]
     Active Substance: QUETIAPINE
     Indication: SENILE PSYCHOSIS
     Dosage: 250 MG, QD
     Route: 048
     Dates: start: 20140101

REACTIONS (2)
  - Mania [Not Recovered/Not Resolved]
  - Psychomotor hyperactivity [Not Recovered/Not Resolved]

NARRATIVE: CASE EVENT DATE: 20170330
